FAERS Safety Report 9965612 (Version 1)
Quarter: 2014Q1

REPORT INFORMATION
  Report Type: Report from Study
  Country: US (occurrence: US)
  Receive Date: 20140305
  Receipt Date: 20140305
  Transmission Date: 20141002
  Serious: No
  Sender: FDA-Public Use
  Company Number: US-ABBVIE-13P-163-1124632-00

PATIENT
  Sex: Male

DRUGS (3)
  1. HUMIRA [Suspect]
     Indication: RHEUMATOID ARTHRITIS
     Dosage: WEEKLY
     Dates: start: 20120411
  2. HUMIRA [Suspect]
     Dosage: WEEKLY
     Dates: start: 2013
  3. HUMIRA [Suspect]
     Dosage: WEEKLY
     Dates: start: 2013

REACTIONS (2)
  - Influenza like illness [Recovered/Resolved]
  - Influenza like illness [Recovered/Resolved]
